FAERS Safety Report 6811815-4 (Version None)
Quarter: 2010Q2

REPORT INFORMATION
  Report Type: 
  Country: None (occurrence: None)
  Receive Date: 20100628
  Receipt Date: 20100613
  Transmission Date: 20101027
  Serious: Yes (Hospitalization)
  Sender: FDA-Public Use
  Company Number: GB-DEXPHARM-20100854

PATIENT
  Age: 53 Year
  Sex: Female

DRUGS (14)
  1. OMEPRAZOLE [Suspect]
     Indication: HIATUS HERNIA
     Dosage: DOSE: 20 MG MILLGRAM(S) SEP. DOSAGES / INTERVAL: 2 IN 1 DAY ORAL
     Route: 048
     Dates: end: 20100201
  2. ALFACALCIDOL [Concomitant]
  3. ATENOLOL [Concomitant]
  4. BETAMETHASONE [Concomitant]
  5. CALCIUM CARBONATE [Concomitant]
  6. CARBIMAZOLE [Concomitant]
  7. DOMPERIDONE [Concomitant]
  8. FEXOFENADINE [Concomitant]
  9. FLUOXETINE [Concomitant]
  10. FLUTICASONE [Concomitant]
  11. LOPERAMIDE [Concomitant]
  12. MAGNESIUM GLYCEROPHOSPHATE [Concomitant]
  13. POTASSIUM BICARBONATE [Concomitant]
  14. SODIUM ALGINATE [Concomitant]

REACTIONS (2)
  - HYPOCALCAEMIA [None]
  - HYPOMAGNESAEMIA [None]
